FAERS Safety Report 8962193 (Version 3)
Quarter: 2013Q1

REPORT INFORMATION
  Report Type: Spontaneous
  Country: US (occurrence: US)
  Receive Date: 20121212
  Receipt Date: 20130227
  Transmission Date: 20140127
  Serious: Yes (Other)
  Sender: FDA-Public Use
  Company Number: US-PFIZER INC-2012313411

PATIENT
  Age: 58 Year
  Sex: Female
  Weight: 63.04 kg

DRUGS (9)
  1. LYRICA [Suspect]
     Indication: ARTHRITIS
     Dosage: 50 MG, DAILY
     Route: 048
     Dates: start: 20121206, end: 20121212
  2. LYRICA [Suspect]
     Indication: BACK PAIN
  3. EFFEXOR-XR [Concomitant]
     Dosage: 75 MG, DAILY
     Dates: start: 2003
  4. ZOCOR [Concomitant]
     Indication: BLOOD CHOLESTEROL ABNORMAL
     Dosage: 60 MG, DAILY
     Route: 048
  5. ZOCOR [Concomitant]
     Dosage: 20 MG, 3X/DAY
     Route: 048
  6. CLONIDINE HYDROCHLORIDE [Concomitant]
     Dosage: 0.1 MG, AS NEEDED
     Dates: start: 2012
  7. DICLOFENAC SODIUM [Concomitant]
     Dosage: ONE TABLET, 2X/DAY
     Dates: start: 2012
  8. GABAPENTIN [Concomitant]
  9. LIDOCAINE [Concomitant]
     Indication: PAIN
     Dosage: 2 %, EVERY 8 HOURS AS NEEDED
     Dates: start: 20121206

REACTIONS (2)
  - Blood pressure increased [Recovered/Resolved]
  - Off label use [Unknown]
